FAERS Safety Report 13793179 (Version 1)
Quarter: 2017Q3

REPORT INFORMATION
  Report Type: Report from Study
  Country: BR (occurrence: BR)
  Receive Date: 20170726
  Receipt Date: 20170726
  Transmission Date: 20171127
  Serious: Yes (Other)
  Sender: FDA-Public Use
  Company Number: BR-SA-2017SA135315

PATIENT
  Sex: Female

DRUGS (4)
  1. LOSARTAN. [Concomitant]
     Active Substance: LOSARTAN
     Dosage: 50MG
     Route: 065
  2. ATORVASTATIN [Concomitant]
     Active Substance: ATORVASTATIN
     Dosage: 10MG
     Route: 065
  3. LANTUS [Suspect]
     Active Substance: INSULIN GLARGINE
     Indication: TYPE 1 DIABETES MELLITUS
     Route: 051
     Dates: start: 201307
  4. HYDROCHLOROTHIAZIDE. [Concomitant]
     Active Substance: HYDROCHLOROTHIAZIDE
     Dosage: 25MG
     Route: 065

REACTIONS (11)
  - Injection site mass [Unknown]
  - Product use issue [Unknown]
  - Renal impairment [Unknown]
  - Proteinuria [Unknown]
  - Malaise [Unknown]
  - Off label use [Unknown]
  - Diabetic neuropathy [Unknown]
  - Weight increased [Unknown]
  - Injection site swelling [Unknown]
  - Nervous system disorder [Unknown]
  - Renal impairment [Unknown]

NARRATIVE: CASE EVENT DATE: 2014
